FAERS Safety Report 8522531-5 (Version None)
Quarter: 2012Q3

REPORT INFORMATION
  Report Type: 
  Country: None (occurrence: None)
  Receive Date: 20120719
  Receipt Date: 20120710
  Transmission Date: 20120928
  Serious: Yes (Hospitalization, Other)
  Sender: FDA-Public Use
  Company Number: US-BRISTOL-MYERS SQUIBB COMPANY-16662991

PATIENT
  Age: 69 Year
  Sex: Female
  Weight: 60 kg

DRUGS (19)
  1. IPILIMUMAB [Suspect]
     Indication: MALIGNANT MELANOMA
     Dosage: LAST ADMINISTERED DATE:04MAY2012. REMOVED FROM PROTOCOL ON 08JUN12
     Route: 042
     Dates: start: 20120504, end: 20120504
  2. MIRALAX [Concomitant]
  3. GABAPENTIN [Concomitant]
  4. CALCIUM CARBONATE [Concomitant]
  5. EUCERIN [Concomitant]
     Dosage: CREAM
  6. CALCIUM + VITAMIN D [Concomitant]
  7. LORAZEPAM [Concomitant]
  8. SIMETHICONE [Concomitant]
  9. AMBIEN [Concomitant]
  10. FERROUS SULFATE TAB [Concomitant]
  11. VALTREX [Concomitant]
  12. NEURONTIN [Concomitant]
  13. ASPIRIN [Concomitant]
  14. LISINOPRIL AND HYDROCHLOROTHIAZIDE [Concomitant]
  15. MULTI-VITAMIN [Concomitant]
  16. SENNA-MINT WAF [Concomitant]
     Dosage: TAB
  17. PREDNISONE [Concomitant]
  18. OXYCODONE HCL [Concomitant]
  19. DOCUSATE SODIUM [Concomitant]

REACTIONS (4)
  - LYMPHOPENIA [None]
  - NEUROPATHY PERIPHERAL [None]
  - HYPONATRAEMIA [None]
  - RASH [None]
